FAERS Safety Report 7054355-2 (Version None)
Quarter: 2010Q4

REPORT INFORMATION
  Report Type: 
  Country: None (occurrence: None)
  Receive Date: 20101020
  Receipt Date: 20100830
  Transmission Date: 20110411
  Serious: No
  Sender: FDA-Public Use
  Company Number: US-BAYER-201020882BCC

PATIENT
  Age: 69 Year
  Sex: Female
  Weight: 66 kg

DRUGS (7)
  1. ALEVE (CAPLET) [Suspect]
     Indication: PAIN
     Dosage: TOTAL DAILY DOSE: 220 MG  UNIT DOSE: 220 MG
     Route: 048
     Dates: start: 20100826, end: 20100827
  2. SLEEP MEDICATION [Concomitant]
     Route: 065
  3. ZOLPIDEM TARTRATE [Concomitant]
     Route: 065
  4. PREMARIN [Concomitant]
     Route: 065
  5. SYNTHROID [Concomitant]
     Route: 065
  6. ONE A DAY WOMEN'S 50 PLUS ADVANTAGE [Concomitant]
     Route: 065
  7. VITAMIN D [Concomitant]
     Route: 065

REACTIONS (1)
  - INSOMNIA [None]
